FAERS Safety Report 10313702 (Version 2)
Quarter: 2014Q3

REPORT INFORMATION
  Report Type: Spontaneous
  Country: MX (occurrence: MX)
  Receive Date: 20140718
  Receipt Date: 20140821
  Transmission Date: 20150326
  Serious: Yes (Other)
  Sender: FDA-Public Use
  Company Number: MX-SA-2014SA092786

PATIENT
  Age: 65 Year
  Sex: Male

DRUGS (4)
  1. LEFLUNOMIDE. [Suspect]
     Active Substance: LEFLUNOMIDE
     Indication: RHEUMATOID ARTHRITIS
     Route: 065
  2. SULFASALAZINE. [Concomitant]
     Active Substance: SULFASALAZINE
     Indication: RHEUMATOID ARTHRITIS
  3. DICLOFENAC SALT NOT SPECIFIED [Suspect]
     Active Substance: DICLOFENAC
     Indication: RHEUMATOID ARTHRITIS
     Route: 048
  4. NAPROXEN. [Concomitant]
     Active Substance: NAPROXEN
     Indication: RHEUMATOID ARTHRITIS

REACTIONS (12)
  - Poikiloderma [Recovering/Resolving]
  - Pruritus [Recovering/Resolving]
  - Skin fragility [Recovering/Resolving]
  - Necrosis [Recovering/Resolving]
  - Eczema [Recovering/Resolving]
  - Anaemia [Recovering/Resolving]
  - Dermatosis [Recovering/Resolving]
  - Blister [Recovering/Resolving]
  - Erythema [Recovering/Resolving]
  - Atrophy [Recovering/Resolving]
  - Leukocytosis [Recovering/Resolving]
  - Acquired porphyria [Recovering/Resolving]
